FAERS Safety Report 22324880 (Version 1)
Quarter: 2023Q2

REPORT INFORMATION
  Report Type: Spontaneous
  Country: FI (occurrence: FI)
  Receive Date: 20230516
  Receipt Date: 20230516
  Transmission Date: 20230722
  Serious: Yes (Disabling)
  Sender: FDA-Public Use
  Company Number: None

PATIENT

DRUGS (1)
  1. CYTOTEC [Suspect]
     Active Substance: MISOPROSTOL
     Dosage: UNK
     Route: 064
     Dates: start: 20190826, end: 20190828

REACTIONS (4)
  - Foetal exposure during delivery [Unknown]
  - Autism spectrum disorder [Recovered/Resolved with Sequelae]
  - Foetal heart rate decreased [Recovered/Resolved with Sequelae]
  - Congenital diaphragmatic eventration [Recovered/Resolved with Sequelae]

NARRATIVE: CASE EVENT DATE: 20190826
